FAERS Safety Report 16786273 (Version 1)
Quarter: 2019Q3

REPORT INFORMATION
  Report Type: Spontaneous
  Country: KW (occurrence: KW)
  Receive Date: 20190909
  Receipt Date: 20190909
  Transmission Date: 20191005
  Serious: Yes (Other)
  Sender: FDA-Public Use
  Company Number: KW-UNICHEM PHARMACEUTICALS (USA) INC-UCM201909-000412

PATIENT
  Age: 15 Year
  Sex: Female

DRUGS (1)
  1. QUETIAPINE. [Suspect]
     Active Substance: QUETIAPINE
     Indication: BIPOLAR I DISORDER
     Dosage: TITRATED UPTO 600 MG/D

REACTIONS (2)
  - Idiopathic intracranial hypertension [Recovered/Resolved]
  - Weight increased [Recovering/Resolving]
